FAERS Safety Report 5914309-3 (Version None)
Quarter: 2008Q4

REPORT INFORMATION
  Report Type: 
  Country: None (occurrence: None)
  Receive Date: 20081009
  Receipt Date: 20080919
  Transmission Date: 20090506
  Serious: Yes (Other)
  Sender: FDA-Public Use
  Company Number: FR-PFIZER INC-2008077759

PATIENT
  Sex: Male

DRUGS (3)
  1. IRINOTECAN HCL [Suspect]
     Indication: METASTASES TO PERITONEUM
     Dates: start: 20080825, end: 20080825
  2. MITOMYCIN [Suspect]
     Indication: METASTASES TO PERITONEUM
     Dates: start: 20080825, end: 20080825
  3. KETOPROFEN [Concomitant]
     Route: 048
     Dates: start: 20080907, end: 20080909

REACTIONS (1)
  - LOCALISED INTRAABDOMINAL FLUID COLLECTION [None]
